FAERS Safety Report 6841882-3 (Version None)
Quarter: 2010Q3

REPORT INFORMATION
  Report Type: 
  Country: None (occurrence: None)
  Receive Date: 20100714
  Receipt Date: 20070717
  Transmission Date: 20110219
  Serious: No
  Sender: FDA-Public Use
  Company Number: US-PFIZER INC-2007059469

PATIENT
  Sex: Female
  Weight: 81.818 kg

DRUGS (9)
  1. CHANTIX [Suspect]
     Indication: SMOKING CESSATION THERAPY
     Dates: start: 20070701
  2. TRIAMTERENE AND HYDROCHLOROTHIAZIDE [Concomitant]
     Indication: HYPERTENSION
     Dosage: 1/2 TABLET
  3. CYMBALTA [Concomitant]
     Indication: ILL-DEFINED DISORDER
  4. ZYRTEC [Concomitant]
  5. OMEPRAZOLE [Concomitant]
     Indication: GASTROOESOPHAGEAL REFLUX DISEASE
  6. ACETYLSALICYLIC ACID [Concomitant]
  7. VITAMIN B-12 [Concomitant]
  8. LEVOSALBUTAMOL [Concomitant]
  9. IPRATROPIUM BROMIDE [Concomitant]

REACTIONS (1)
  - NAUSEA [None]
